FAERS Safety Report 7231394-X (Version None)
Quarter: 2011Q1

REPORT INFORMATION
  Report Type: 
  Country: None (occurrence: None)
  Receive Date: 20110118
  Receipt Date: 20110106
  Transmission Date: 20110831
  Serious: Yes (Hospitalization, Other)
  Sender: FDA-Public Use
  Company Number: IE-MERCK-1101GBR00023

PATIENT
  Age: 68 Year
  Sex: Male

DRUGS (4)
  1. VYTORIN [Suspect]
     Indication: HYPERCHOLESTEROLAEMIA
     Route: 048
  2. ASPIRIN [Concomitant]
     Indication: AORTIC STENOSIS
     Route: 065
  3. HYDROCHLOROTHIAZIDE AND LOSARTAN POTASSIUM [Concomitant]
     Indication: HYPERTENSION
     Route: 048
  4. BISOPROLOL [Concomitant]
     Indication: HYPERTENSION
     Route: 065

REACTIONS (1)
  - AGITATED DEPRESSION [None]
